FAERS Safety Report 17812045 (Version 2)
Quarter: 2020Q2

REPORT INFORMATION
  Report Type: Spontaneous
  Country: US (occurrence: US)
  Receive Date: 20200521
  Receipt Date: 20200626
  Transmission Date: 20200714
  Serious: No
  Sender: FDA-Public Use
  Company Number: US-ASTRAZENECA-2020SE63497

PATIENT
  Sex: Female
  Weight: 99.8 kg

DRUGS (2)
  1. BYDUREON BCISE [Suspect]
     Active Substance: EXENATIDE
     Indication: DIABETES MELLITUS
     Route: 058
     Dates: start: 2019
  2. TOUJEO INSULIN [Concomitant]

REACTIONS (5)
  - Device delivery system issue [Unknown]
  - Device issue [Unknown]
  - Injection site injury [Unknown]
  - Intentional device misuse [Unknown]
  - Injection site haemorrhage [Unknown]
